FAERS Safety Report 9495384 (Version 1)
Quarter: 2013Q3

REPORT INFORMATION
  Report Type: Report from Study
  Country: ES (occurrence: ES)
  Receive Date: 20130903
  Receipt Date: 20130903
  Transmission Date: 20140515
  Serious: Yes (Other)
  Sender: FDA-Public Use
  Company Number: ES-GLAXOSMITHKLINE-B0919470A

PATIENT
  Age: 67 Year
  Sex: Male

DRUGS (2)
  1. PAZOPANIB [Suspect]
     Indication: PRODUCT USED FOR UNKNOWN INDICATION
     Dosage: 800MG PER DAY
     Route: 065
  2. VALSARTAN [Concomitant]
     Dosage: 160MG PER DAY

REACTIONS (5)
  - Retinal tear [Unknown]
  - Hair colour changes [Unknown]
  - Asthenia [Unknown]
  - Paraesthesia [Unknown]
  - Skin hypopigmentation [Unknown]
